FAERS Safety Report 17501491 (Version 1)
Quarter: 2020Q1

REPORT INFORMATION
  Report Type: Spontaneous
  Country: DE (occurrence: DE)
  Receive Date: 20200305
  Receipt Date: 20200305
  Transmission Date: 20200409
  Serious: Yes (Other)
  Sender: FDA-Public Use
  Company Number: DE-PFIZER INC-2020095122

PATIENT

DRUGS (1)
  1. CYTOTEC [Suspect]
     Active Substance: MISOPROSTOL
     Indication: LABOUR INDUCTION
     Dosage: 1 DF, (ONE TABLET) UNK
     Route: 064
     Dates: start: 20190107, end: 20190107

REACTIONS (3)
  - Foetal heart rate decreased [Recovered/Resolved]
  - Foetal exposure during pregnancy [Unknown]
  - Oxygen saturation decreased [Recovered/Resolved]
